FAERS Safety Report 21814848 (Version 1)
Quarter: 2023Q1

REPORT INFORMATION
  Report Type: Spontaneous
  Country: US (occurrence: US)
  Receive Date: 20230104
  Receipt Date: 20230104
  Transmission Date: 20230417
  Serious: Yes (Other)
  Sender: FDA-Public Use
  Company Number: US-NAPO PHARMACEUTICALS-2022US005408

PATIENT

DRUGS (1)
  1. MYTESI [Suspect]
     Active Substance: CROFELEMER
     Indication: Diarrhoea
     Dosage: 125 MG, BID
     Route: 048
     Dates: start: 20210405

REACTIONS (8)
  - Spinal disorder [Unknown]
  - Anal incontinence [Unknown]
  - Urinary incontinence [Unknown]
  - Weight increased [Unknown]
  - Fatigue [Unknown]
  - Rhinorrhoea [Unknown]
  - Nasal congestion [Unknown]
  - Seasonal allergy [Unknown]
